FAERS Safety Report 25117502 (Version 1)
Quarter: 2025Q1

REPORT INFORMATION
  Report Type: Spontaneous
  Country: US (occurrence: None)
  Receive Date: 20250324
  Receipt Date: 20250324
  Transmission Date: 20250408
  Serious: Yes (unspecified)
  Sender: FDA-CTU
  Company Number: None

PATIENT
  Age: 39 Year
  Sex: Male

DRUGS (2)
  1. BUTRANS [Suspect]
     Active Substance: BUPRENORPHINE
  2. BUTRANS [Concomitant]
     Active Substance: BUPRENORPHINE
     Dates: start: 20250226

REACTIONS (1)
  - Application site rash [None]

NARRATIVE: CASE EVENT DATE: 20250321
